FAERS Safety Report 10738417 (Version 2)
Quarter: 2015Q1

REPORT INFORMATION
  Report Type: Spontaneous
  Country: SG (occurrence: SG)
  Receive Date: 20150126
  Receipt Date: 20150126
  Transmission Date: 20150721
  Serious: Yes (Other)
  Sender: FDA-Public Use
  Company Number: SG-ACTAVIS-2015-00624

PATIENT
  Age: 79 Year
  Sex: Male

DRUGS (3)
  1. FLUOXETINE [Suspect]
     Active Substance: FLUOXETINE\FLUOXETINE HYDROCHLORIDE
     Indication: DEPRESSION
     Dosage: 80 MG, DAILY
     Route: 065
  2. LAMIVUDINE. [Concomitant]
     Active Substance: LAMIVUDINE
     Indication: HEPATIC CIRRHOSIS
     Dosage: UNK
     Route: 065
  3. DONEPEZIL (UNKNOWN) [Suspect]
     Active Substance: DONEPEZIL
     Indication: DEMENTIA ALZHEIMER^S TYPE
     Dosage: UNK UNK, DAILY
     Route: 065

REACTIONS (5)
  - Lethargy [Unknown]
  - Aspartate aminotransferase increased [Recovering/Resolving]
  - Decreased appetite [Unknown]
  - Drug interaction [Recovering/Resolving]
  - Alanine aminotransferase increased [Recovering/Resolving]
